FAERS Safety Report 6642105-0 (Version None)
Quarter: 2010Q1

REPORT INFORMATION
  Report Type: 
  Country: None (occurrence: None)
  Receive Date: 20100319
  Receipt Date: 20100311
  Transmission Date: 20100710
  Serious: Yes (Death, Life-Threatening)
  Sender: FDA-Public Use
  Company Number: US-BRACCO-004177

PATIENT
  Sex: Female
  Weight: 58 kg

DRUGS (26)
  1. EFFEXOR XR [Concomitant]
     Indication: DEPRESSION
     Route: 048
  2. FERROUS SULFATE TAB [Concomitant]
     Route: 048
  3. MAALOX [Concomitant]
     Indication: DYSPEPSIA
  4. LOVENOX [Concomitant]
     Indication: THROMBOSIS PROPHYLAXIS
     Route: 058
  5. ISOVUE-128 [Suspect]
     Indication: HAEMATOMA
     Route: 042
     Dates: start: 20100310, end: 20100310
  6. ISOVUE-128 [Suspect]
     Indication: ABSCESS
     Route: 042
     Dates: start: 20100310, end: 20100310
  7. ISOVUE-128 [Suspect]
     Indication: COMPUTERISED TOMOGRAM
     Route: 042
     Dates: start: 20100310, end: 20100310
  8. ISOVUE-128 [Suspect]
     Indication: ACETABULUM FRACTURE
     Route: 042
     Dates: start: 20100310, end: 20100310
  9. COLACE [Concomitant]
     Indication: CONSTIPATION
     Route: 048
  10. PILOCARPINE HYDROCHLORIDE [Concomitant]
     Dosage: TO LEFT EYE
     Route: 047
  11. LASIX [Concomitant]
     Route: 048
  12. BACLOFEN [Concomitant]
     Indication: MUSCLE SPASMS
     Route: 048
  13. BACLOFEN [Concomitant]
     Route: 065
  14. ECOTRIN [Concomitant]
     Indication: ANTICOAGULANT THERAPY
     Route: 048
  15. LISINOPRIL [Concomitant]
     Indication: HYPERTENSION
     Route: 048
  16. SENOKOT [Concomitant]
     Indication: CONSTIPATION
     Dosage: 2 TABLETS ONCE A DAY
     Route: 048
  17. LIDOCAINE 2% [Concomitant]
     Dosage: 0.5% PATCH TO RIGHT PELVIS AND LOWER BACK
     Route: 062
  18. BACITRACIN [Concomitant]
     Indication: RASH
     Dosage: APPLY TO BACK THREE TIMES A DAY (TID)
     Route: 061
  19. DILAUDID [Concomitant]
     Dosage: GIVEN AS NEEDED (PRN)
     Route: 065
  20. LABETALOL HCL [Concomitant]
     Indication: HYPERTENSION
     Route: 048
  21. PERCOCET [Concomitant]
     Indication: PAIN
  22. KENALOG [Concomitant]
     Indication: RASH
     Dosage: GIVEN TWICE A DAY (BID)
     Route: 061
  23. CIPRO [Concomitant]
     Indication: URINARY TRACT INFECTION
     Route: 048
  24. MUPIROCIN [Concomitant]
     Indication: ECZEMA
     Dosage: APPLY TO THIGHS TWICE A DAY (BID)
     Route: 061
  25. PERCOLONE [Concomitant]
     Indication: PAIN
     Dosage: GIVEN AS NEEDED (PRN)
     Route: 065
  26. MORPHINE [Concomitant]
     Route: 065

REACTIONS (1)
  - CARDIAC ARREST [None]
